FAERS Safety Report 5386808-7 (Version None)
Quarter: 2007Q3

REPORT INFORMATION
  Report Type: 
  Country: None (occurrence: None)
  Receive Date: 20070713
  Receipt Date: 20070702
  Transmission Date: 20080115
  Serious: Yes (Hospitalization)
  Sender: FDA-Public Use
  Company Number: US-PFIZER INC-2006123339

PATIENT
  Sex: Male

DRUGS (3)
  1. BEXTRA [Suspect]
  2. CELEBREX [Suspect]
  3. VIOXX [Suspect]

REACTIONS (1)
  - CARDIOVASCULAR DISORDER [None]
